FAERS Safety Report 5968406-7 (Version None)
Quarter: 2008Q4

REPORT INFORMATION
  Report Type: 
  Country: None (occurrence: None)
  Receive Date: 20081126
  Receipt Date: 20081117
  Transmission Date: 20090506
  Serious: Yes (Other)
  Sender: FDA-Public Use
  Company Number: US-ELI_LILLY_AND_COMPANY-US_990116562

PATIENT
  Age: 60 Year
  Sex: Female

DRUGS (3)
  1. GEMZAR [Suspect]
     Indication: NON-SMALL CELL LUNG CANCER
     Dosage: 1000 MG/M2, UNKNOWN
     Route: 042
     Dates: start: 19970924, end: 19971105
  2. AMITRIPTYLINE HCL [Concomitant]
     Dosage: 25 MG, DAILY (1/D)
  3. ACYCLOVIR [Concomitant]
     Indication: HERPES ZOSTER
     Dosage: 400 MG, 2/D

REACTIONS (1)
  - CAPILLARY LEAK SYNDROME [None]
